FAERS Safety Report 24440441 (Version 1)
Quarter: 2024Q4

REPORT INFORMATION
  Report Type: Spontaneous
  Country: US (occurrence: US)
  Receive Date: 20241016
  Receipt Date: 20241016
  Transmission Date: 20250115
  Serious: Yes (Hospitalization)
  Sender: STRIDES
  Company Number: US-STRIDES ARCOLAB LIMITED-2024SP013241

PATIENT
  Age: 8 Decade
  Sex: Male

DRUGS (13)
  1. DONEPEZIL [Suspect]
     Active Substance: DONEPEZIL
     Indication: Schizoaffective disorder bipolar type
     Dosage: 5 MILLIGRAM, OD
     Route: 065
     Dates: start: 202304
  2. DONEPEZIL [Suspect]
     Active Substance: DONEPEZIL
     Dosage: 10 MILLIGRAM, QD
     Route: 065
     Dates: start: 2023
  3. DONEPEZIL [Suspect]
     Active Substance: DONEPEZIL
     Dosage: 5 MILLIGRAM, QD
     Route: 065
     Dates: start: 202309
  4. CLOZAPINE [Suspect]
     Active Substance: CLOZAPINE
     Indication: Schizoaffective disorder bipolar type
     Dosage: 125 MILLIGRAM, AT BED TIME (AT NIGHT)
     Route: 065
     Dates: start: 202304
  5. CLOZAPINE [Suspect]
     Active Substance: CLOZAPINE
     Dosage: 50 MILLIGRAM, QD
     Route: 065
     Dates: start: 2023
  6. DIVALPROEX SODIUM [Concomitant]
     Active Substance: DIVALPROEX SODIUM
     Indication: Schizoaffective disorder bipolar type
     Dosage: UNK, BID (UP TO 250 MG)
     Route: 065
  7. OXCARBAZEPINE [Concomitant]
     Active Substance: OXCARBAZEPINE
     Indication: Schizoaffective disorder bipolar type
     Dosage: 150 MILLIGRAM, BID
     Route: 065
  8. OLANZAPINE [Concomitant]
     Active Substance: OLANZAPINE
     Indication: Schizoaffective disorder bipolar type
     Dosage: UNK
     Route: 065
     Dates: start: 2022
  9. OLANZAPINE [Concomitant]
     Active Substance: OLANZAPINE
     Dosage: 15 MILLIGRAM, BID
     Route: 065
  10. HALOPERIDOL [Concomitant]
     Active Substance: HALOPERIDOL
     Indication: Schizoaffective disorder bipolar type
     Dosage: 7.5 MILLIGRAM, BID
     Route: 065
     Dates: start: 202304
  11. HALOPERIDOL [Concomitant]
     Active Substance: HALOPERIDOL
     Indication: Agitation
     Dosage: 5 MILLIGRAM, BID
     Route: 065
     Dates: start: 2023
  12. GABAPENTIN [Concomitant]
     Active Substance: GABAPENTIN
     Indication: Schizoaffective disorder bipolar type
     Dosage: UNK
     Route: 065
     Dates: start: 2022
  13. LORAZEPAM [Concomitant]
     Active Substance: LORAZEPAM
     Indication: Agitation
     Dosage: UNK
     Route: 065

REACTIONS (2)
  - Delirium [Recovered/Resolved]
  - Off label use [Unknown]
